FAERS Safety Report 8936556 (Version 3)
Quarter: 2012Q4

REPORT INFORMATION
  Report Type: 
  Country: DE (occurrence: DE)
  Receive Date: 20121130
  Receipt Date: 20121214
  Transmission Date: 20130627
  Serious: Yes (Life-Threatening, Hospitalization, Other)
  Sender: FDA-Public Use
  Company Number: DE-PFIZER INC-2012297311

PATIENT
  Sex: Male
  Weight: 70.4 kg

DRUGS (2)
  1. TAZOBAC EF [Suspect]
     Indication: INFECTION
     Dosage: 4.5 g, 3x/day
     Route: 042
     Dates: start: 20121116
  2. METRONIDAZOLE [Suspect]
     Indication: INFECTION
     Dosage: 500 mg, 2x/day
     Route: 042
     Dates: start: 20121119

REACTIONS (5)
  - Renal failure [Not Recovered/Not Resolved]
  - Anuria [Unknown]
  - Blood creatinine increased [Unknown]
  - Dialysis [None]
  - Blood pressure decreased [None]
